FAERS Safety Report 9863890 (Version 1)
Quarter: 2014Q1

REPORT INFORMATION
  Report Type: Spontaneous
  Country: GB (occurrence: GB)
  Receive Date: 20140203
  Receipt Date: 20140203
  Transmission Date: 20141002
  Serious: Yes (Other)
  Sender: FDA-Public Use
  Company Number: GB-GLAXOSMITHKLINE-B0965209A

PATIENT
  Age: 28 Year
  Sex: Female

DRUGS (6)
  1. TRETINOIN [Suspect]
     Indication: ACUTE PROMYELOCYTIC LEUKAEMIA
     Dosage: 45MGM2 PER DAY
     Route: 065
  2. ACYCLOVIR [Suspect]
     Indication: PROPHYLAXIS
     Route: 065
  3. ALLOPURINOL [Suspect]
     Indication: PROPHYLAXIS
     Route: 065
  4. PIPERACILLIN + TAZOBACTAM [Suspect]
     Indication: FEBRILE NEUTROPENIA
     Route: 065
  5. ITRACONAZOLE [Suspect]
     Indication: PROPHYLAXIS
     Route: 065
  6. IDARUBICIN [Suspect]
     Indication: ACUTE PROMYELOCYTIC LEUKAEMIA

REACTIONS (6)
  - Nodal arrhythmia [Recovered/Resolved]
  - Acute promyelocytic leukaemia differentiation syndrome [Unknown]
  - Infection [Unknown]
  - Pulmonary haemorrhage [Unknown]
  - Fluid overload [Unknown]
  - Transfusion-related acute lung injury [Unknown]
